FAERS Safety Report 5269505-8 (Version None)
Quarter: 2007Q1

REPORT INFORMATION
  Report Type: 
  Country: None (occurrence: None)
  Receive Date: 20070320
  Receipt Date: 20070309
  Transmission Date: 20070707
  Serious: Yes (Death)
  Sender: FDA-Public Use
  Company Number: JP-BRISTOL-MYERS SQUIBB COMPANY-13718150

PATIENT
  Age: 57 Year
  Sex: Male

DRUGS (5)
  1. ENDOXAN [Suspect]
     Indication: BONE MARROW CONDITIONING REGIMEN
  2. FLUDARABINE PHOSPHATE [Suspect]
     Indication: BONE MARROW CONDITIONING REGIMEN
  3. BUSULFAN [Suspect]
     Indication: BONE MARROW CONDITIONING REGIMEN
  4. TACROLIMUS [Suspect]
     Indication: PROPHYLAXIS
  5. RADIATION THERAPY [Suspect]
     Indication: BONE MARROW CONDITIONING REGIMEN

REACTIONS (3)
  - BRONCHOPULMONARY ASPERGILLOSIS [None]
  - DEATH [None]
  - GRAFT VERSUS HOST DISEASE [None]
